FAERS Safety Report 5451335-5 (Version None)
Quarter: 2007Q3

REPORT INFORMATION
  Report Type: 
  Country: None (occurrence: None)
  Receive Date: 20070913
  Receipt Date: 20070907
  Transmission Date: 20080115
  Serious: Yes (Hospitalization, Other)
  Sender: FDA-Public Use
  Company Number: PHEH2007US10201

PATIENT
  Age: 58 Year
  Sex: Female

DRUGS (2)
  1. ZELNORM [Suspect]
     Dates: start: 20060201, end: 20070201
  2. METOPROLOL SUCCINATE [Concomitant]
     Dosage: 25 MG, UNK
     Route: 048

REACTIONS (11)
  - CARDIAC DISORDER [None]
  - FACIAL BONES FRACTURE [None]
  - FALL [None]
  - FIBROMYALGIA [None]
  - GAIT DISTURBANCE [None]
  - HEART RATE DECREASED [None]
  - HYPOKALAEMIA [None]
  - MALAISE [None]
  - MUSCLE SPASMS [None]
  - MYOCARDIAL ISCHAEMIA [None]
  - OEDEMA PERIPHERAL [None]
